FAERS Safety Report 23256079 (Version 2)
Quarter: 2024Q1

REPORT INFORMATION
  Report Type: Report from Study
  Country: US (occurrence: US)
  Receive Date: 20231204
  Receipt Date: 20240116
  Transmission Date: 20240409
  Serious: No
  Sender: FDA-Public Use
  Company Number: US-ACADIA PHARMACEUTICALS INC.-ACA-2023-TRF-005178

PATIENT
  Age: 18 Year
  Sex: Female

DRUGS (6)
  1. DAYBUE [Suspect]
     Active Substance: TROFINETIDE
     Indication: Rett syndrome
     Dosage: UNK
     Route: 048
     Dates: start: 20231006
  2. DAYBUE [Suspect]
     Active Substance: TROFINETIDE
     Dosage: 60 MILLILITER, BID
     Route: 048
     Dates: start: 20231107
  3. DAYBUE [Suspect]
     Active Substance: TROFINETIDE
     Dosage: 40 MILLILITER
     Route: 048
  4. DAYBUE [Suspect]
     Active Substance: TROFINETIDE
     Dosage: 60 MILILITER, BID
     Route: 048
     Dates: end: 20231213
  5. IMODIUM [Suspect]
     Active Substance: LOPERAMIDE HYDROCHLORIDE
     Indication: Diarrhoea
  6. CALCIUM POLYCARBOPHIL [Suspect]
     Active Substance: CALCIUM POLYCARBOPHIL
     Indication: Diarrhoea
     Dosage: GUMMIES

REACTIONS (11)
  - Abdominal pain [Unknown]
  - Retching [Not Recovered/Not Resolved]
  - Anger [Not Recovered/Not Resolved]
  - Constipation [Not Recovered/Not Resolved]
  - Underdose [Not Recovered/Not Resolved]
  - Rash [Unknown]
  - Fungal infection [Unknown]
  - Constipation [Unknown]
  - Emotional distress [Unknown]
  - Diarrhoea [Recovering/Resolving]
  - Diarrhoea [Unknown]

NARRATIVE: CASE EVENT DATE: 20231107
